FAERS Safety Report 11526733 (Version 2)
Quarter: 2017Q1

REPORT INFORMATION
  Report Type: Spontaneous
  Country: US (occurrence: US)
  Receive Date: 20150903
  Receipt Date: 20170323
  Transmission Date: 20170428
  Serious: Yes (Other)
  Sender: FDA-Public Use
  Company Number: US-ELI_LILLY_AND_COMPANY-US201405005816

PATIENT
  Sex: Female

DRUGS (4)
  1. CYMBALTA [Suspect]
     Active Substance: DULOXETINE HYDROCHLORIDE
     Indication: FIBROMYALGIA
     Dosage: 60MG, UNK
     Route: 048
     Dates: start: 2011
  2. WELLBUTRIN [Concomitant]
     Active Substance: BUPROPION HYDROCHLORIDE
     Indication: PRODUCT USED FOR UNKNOWN INDICATION
  3. XANAX [Concomitant]
     Active Substance: ALPRAZOLAM
     Indication: PRODUCT USED FOR UNKNOWN INDICATION
     Dosage: .05, UNK, UNK
  4. CYMBALTA [Suspect]
     Active Substance: DULOXETINE HYDROCHLORIDE
     Indication: DEPRESSION
     Dosage: 60MG, QOD
     Route: 048

REACTIONS (24)
  - Vomiting [Unknown]
  - Dizziness [Unknown]
  - Influenza like illness [Recovered/Resolved]
  - Confusional state [Unknown]
  - Fatigue [Unknown]
  - Dizziness [Recovered/Resolved]
  - Nausea [Unknown]
  - Anxiety [Unknown]
  - Tinnitus [Unknown]
  - Headache [Unknown]
  - Irritability [Unknown]
  - Vertigo [Unknown]
  - Lethargy [Unknown]
  - Suicidal ideation [Unknown]
  - Dysphoria [Unknown]
  - Hyperhidrosis [Unknown]
  - Insomnia [Unknown]
  - Wrong technique in product usage process [Unknown]
  - Drug withdrawal syndrome [Recovered/Resolved]
  - Affect lability [Unknown]
  - Drug dose omission [Recovered/Resolved]
  - Fall [Recovered/Resolved]
  - Agitation [Unknown]
  - Paraesthesia [Unknown]
